FAERS Safety Report 6555507-8 (Version None)
Quarter: 2010Q1

REPORT INFORMATION
  Report Type: 
  Country: None (occurrence: None)
  Receive Date: 20100128
  Receipt Date: 20100119
  Transmission Date: 20100710
  Serious: Yes (Hospitalization)
  Sender: FDA-Public Use
  Company Number: JP-ROCHE-680689

PATIENT
  Sex: Female

DRUGS (15)
  1. TOCILIZUMAB [Suspect]
     Indication: RHEUMATOID ARTHRITIS
     Route: 041
     Dates: start: 20080715, end: 20080715
  2. TOCILIZUMAB [Suspect]
     Route: 041
     Dates: start: 20080812, end: 20080812
  3. TOCILIZUMAB [Suspect]
     Route: 041
     Dates: start: 20080909, end: 20080909
  4. TOCILIZUMAB [Suspect]
     Route: 041
     Dates: start: 20081010, end: 20081010
  5. TOCILIZUMAB [Suspect]
     Route: 041
     Dates: start: 20081112, end: 20081112
  6. TOCILIZUMAB [Suspect]
     Route: 041
     Dates: start: 20081210, end: 20081210
  7. TOCILIZUMAB [Suspect]
     Route: 041
     Dates: start: 20090107
  8. PREDNISOLONE [Concomitant]
     Dosage: DOSE FORM: ORAL FORMULATION (NOT OTHERWISE SPECIFIED)
     Route: 048
     Dates: start: 20080919
  9. PREDNISOLONE [Concomitant]
     Dosage: DOSE FORM: ORAL FORMULATION (NOT OTHERWISE SPECIFIED)
     Route: 048
     Dates: start: 20080920, end: 20081209
  10. PREDNISOLONE [Concomitant]
     Dosage: DOSE FORM: ORAL FORMULATION (NOT OTHERWISE SPECIFIED)
     Route: 048
     Dates: start: 20081210
  11. MUCOSTA [Concomitant]
     Route: 048
  12. MAGLAX [Concomitant]
     Dosage: DOSE FORM: ORAL FORMULATION (NOT OTHERWISE SPECIFIED)
     Route: 048
  13. MOBIC [Concomitant]
     Route: 048
  14. CALFINA [Concomitant]
     Route: 048
  15. CEVIMELINE HYDROCHLORIDE [Concomitant]
     Dosage: DRUG NAME: SALIGREN(CEVIMELINE HYDROCHLORIDE HYDRATE)
     Route: 048
     Dates: start: 20080719

REACTIONS (1)
  - OESOPHAGEAL CARCINOMA [None]
